FAERS Safety Report 7426853-0 (Version None)
Quarter: 2011Q2

REPORT INFORMATION
  Report Type: 
  Country: None (occurrence: None)
  Receive Date: 20110420
  Receipt Date: 20110411
  Transmission Date: 20111010
  Serious: Yes (Death, Other)
  Sender: FDA-Public Use
  Company Number: US-BAXTER-2011BH010919

PATIENT
  Sex: Male

DRUGS (2)
  1. REGLAN [Suspect]
     Indication: PRODUCT USED FOR UNKNOWN INDICATION
     Route: 042
     Dates: start: 20021101, end: 20091201
  2. REGLAN [Suspect]
     Route: 048
     Dates: start: 20021101, end: 20091201

REACTIONS (2)
  - DEATH [None]
  - TREMOR [None]
